FAERS Safety Report 17002114 (Version 5)
Quarter: 2020Q2

REPORT INFORMATION
  Report Type: Spontaneous
  Country: US (occurrence: US)
  Receive Date: 20191106
  Receipt Date: 20200406
  Transmission Date: 20200713
  Serious: Yes (Death, Other)
  Sender: FDA-Public Use
  Company Number: US-TAKEDA-2019TUS062671

PATIENT

DRUGS (22)
  1. OMEPRAZOLE MAGNESIUM. [Suspect]
     Active Substance: OMEPRAZOLE MAGNESIUM
     Indication: ACID PEPTIC DISEASE
     Dosage: UNK
     Route: 048
  2. PENICILLIN                         /00000903/ [Concomitant]
     Active Substance: PENICILLIN G SODIUM
     Indication: INFECTION
     Dosage: UNK
     Dates: start: 20100730
  3. TETRACYCLINE [Concomitant]
     Active Substance: TETRACYCLINE
     Indication: INFECTION
     Dosage: UNK
     Dates: start: 20100421
  4. ZANTAC [Concomitant]
     Active Substance: RANITIDINE HYDROCHLORIDE
     Dosage: 150 MILLIGRAM
     Dates: start: 1990, end: 1999
  5. RANITIDINE. [Concomitant]
     Active Substance: RANITIDINE
     Dosage: UNK
     Dates: start: 1990, end: 1999
  6. PREVACID [Suspect]
     Active Substance: LANSOPRAZOLE
     Indication: GASTROOESOPHAGEAL REFLUX DISEASE
     Dosage: 40 MILLIGRAM, BID
     Route: 048
     Dates: start: 20081124, end: 2011
  7. SIMVASTATIN. [Concomitant]
     Active Substance: SIMVASTATIN
     Indication: BLOOD CHOLESTEROL INCREASED
     Dosage: UNK
     Dates: start: 20090202, end: 20110805
  8. AMOXICILLIN. [Concomitant]
     Active Substance: AMOXICILLIN
     Indication: INFECTION
     Dosage: UNK
     Dates: start: 20110214
  9. PREVACID [Suspect]
     Active Substance: LANSOPRAZOLE
     Indication: ACID PEPTIC DISEASE
     Dosage: UNK
     Route: 048
     Dates: start: 2004, end: 2011
  10. CIPROFLOXACIN. [Concomitant]
     Active Substance: CIPROFLOXACIN
     Indication: INFECTION
     Dosage: UNK
     Dates: start: 20101101
  11. ESTROGEN [Concomitant]
     Active Substance: ESTROGENS
     Indication: MENOPAUSE
     Dosage: UNK
     Dates: start: 1990, end: 2001
  12. CIMETIDINE [Concomitant]
     Active Substance: CIMETIDINE
     Dosage: UNK
     Dates: start: 20110609, end: 20110623
  13. PROTONIX [Suspect]
     Active Substance: PANTOPRAZOLE SODIUM
     Indication: ACID PEPTIC DISEASE
     Dosage: UNK
     Route: 048
     Dates: start: 2004, end: 2011
  14. PRILOSEC [Suspect]
     Active Substance: OMEPRAZOLE MAGNESIUM
     Indication: GASTROOESOPHAGEAL REFLUX DISEASE
     Dosage: 20 MILLIGRAM, BID
     Route: 048
     Dates: start: 1999, end: 2011
  15. PRILOSEC [Suspect]
     Active Substance: OMEPRAZOLE MAGNESIUM
     Indication: ACID PEPTIC DISEASE
     Dosage: UNK
     Route: 048
     Dates: start: 2004, end: 2011
  16. AMOXICILLIN. [Concomitant]
     Active Substance: AMOXICILLIN
     Indication: GASTRIC ULCER
  17. AZITHROMYCINE [Concomitant]
     Active Substance: AZITHROMYCIN
     Indication: INFECTION
     Dosage: UNK
     Dates: start: 20091015
  18. PROTONIX [Suspect]
     Active Substance: PANTOPRAZOLE SODIUM
     Indication: GASTROOESOPHAGEAL REFLUX DISEASE
     Dosage: 40 MILLIGRAM, BID
     Route: 048
     Dates: start: 20081118, end: 2011
  19. PANTOPRAZOLE [Suspect]
     Active Substance: PANTOPRAZOLE
     Indication: GASTROOESOPHAGEAL REFLUX DISEASE
     Dosage: 40 MILLIGRAM, BID
     Route: 048
  20. OMEPRAZOLE MAGNESIUM. [Suspect]
     Active Substance: OMEPRAZOLE MAGNESIUM
     Indication: GASTROOESOPHAGEAL REFLUX DISEASE
     Dosage: 20 MILLIGRAM, BID
     Route: 048
     Dates: start: 2004, end: 2011
  21. SULFAMETHOXAZOLE [Concomitant]
     Active Substance: SULFAMETHOXAZOLE
     Indication: INFECTION
     Dosage: UNK
     Dates: start: 20100716, end: 20100803
  22. PEPCID                             /00305201/ [Concomitant]
     Active Substance: ALUMINUM HYDROXIDE\MAGNESIUM CARBONATE
     Dosage: UNK
     Dates: start: 1990, end: 1999

REACTIONS (1)
  - Gastric cancer [Fatal]

NARRATIVE: CASE EVENT DATE: 20110701
